FAERS Safety Report 10690765 (Version 2)
Quarter: 2015Q2

REPORT INFORMATION
  Report Type: Spontaneous
  Country: US (occurrence: US)
  Receive Date: 20150105
  Receipt Date: 20150515
  Transmission Date: 20150821
  Serious: Yes (Hospitalization)
  Sender: FDA-Public Use
  Company Number: US-BAYER-2015-000821

PATIENT
  Age: 30 Year
  Sex: Female
  Weight: 59 kg

DRUGS (1)
  1. MIRENA [Suspect]
     Active Substance: LEVONORGESTREL
     Indication: CONTRACEPTION
     Dosage: 20 MCG/24HR, CONT
     Route: 015
     Dates: start: 200408, end: 200410

REACTIONS (12)
  - Coordination abnormal [None]
  - Depression [None]
  - Device issue [Not Recovered/Not Resolved]
  - Menorrhagia [None]
  - Anxiety [None]
  - Emotional distress [None]
  - Laparoscopy [None]
  - Injury [Not Recovered/Not Resolved]
  - Pyrexia [None]
  - Nausea [None]
  - Uterine perforation [Not Recovered/Not Resolved]
  - Pain [Not Recovered/Not Resolved]

NARRATIVE: CASE EVENT DATE: 2004
